FAERS Safety Report 5294367-2 (Version None)
Quarter: 2007Q2

REPORT INFORMATION
  Report Type: 
  Country: None (occurrence: None)
  Receive Date: 20070409
  Receipt Date: 20070409
  Transmission Date: 20071010
  Serious: Yes (Life-Threatening, Hospitalization)
  Sender: FDA-Public Use
  Company Number: None

PATIENT
  Age: 47 Year
  Sex: Female
  Weight: 97.0698 kg

DRUGS (1)
  1. NUVARING [Suspect]
     Indication: CONTRACEPTION
     Dosage: PER PACKAGE 1 EVERY 25 DAYS VAG
     Route: 067
     Dates: start: 20060101, end: 20070326

REACTIONS (1)
  - PULMONARY EMBOLISM [None]
